FAERS Safety Report 19123070 (Version 2)
Quarter: 2021Q2

REPORT INFORMATION
  Report Type: Spontaneous
  Country: US (occurrence: US)
  Receive Date: 20210412
  Receipt Date: 20210528
  Transmission Date: 20210717
  Serious: Yes (Other)
  Sender: FDA-Public Use
  Company Number: US-PFIZER INC-2021068942

PATIENT
  Age: 50 Year
  Sex: Female

DRUGS (4)
  1. COVID?19 VACCINE NOS. [Concomitant]
     Active Substance: COVID-19 VACCINE NOS
     Indication: IMMUNISATION
     Dosage: UNK
  2. XELJANZ XR [Suspect]
     Active Substance: TOFACITINIB CITRATE
     Indication: RHEUMATOID ARTHRITIS
     Dosage: 11 MG, DAILY
     Route: 048
     Dates: start: 20210115
  3. COVID?19 VACCINE NOS. [Concomitant]
     Active Substance: COVID-19 VACCINE NOS
     Dosage: UNK
     Dates: start: 20210406
  4. PREDNISONE. [Concomitant]
     Active Substance: PREDNISONE
     Dosage: UNK

REACTIONS (7)
  - Musculoskeletal discomfort [Unknown]
  - Intentional dose omission [Unknown]
  - Condition aggravated [Recovering/Resolving]
  - Fatigue [Recovering/Resolving]
  - Product dose omission issue [Unknown]
  - Sensitivity to weather change [Unknown]
  - Uterine mass [Unknown]

NARRATIVE: CASE EVENT DATE: 202101
